FAERS Safety Report 8960722 (Version 1)
Quarter: 2012Q4

REPORT INFORMATION
  Report Type: Spontaneous
  Country: US (occurrence: None)
  Receive Date: 20121207
  Receipt Date: 20121207
  Transmission Date: 20130627
  Serious: Yes (Other)
  Sender: FDA-Public Use
  Company Number: None

PATIENT
  Age: 71 Year
  Sex: Male
  Weight: 77.11 kg

DRUGS (3)
  1. TARCEVA [Suspect]
     Indication: LUNG CANCER
     Route: 048
     Dates: start: 20120926, end: 20121205
  2. IMODIUM [Concomitant]
  3. CLARITIN [Concomitant]

REACTIONS (3)
  - Rash [None]
  - Pruritus [None]
  - Rash [None]
